FAERS Safety Report 4607476-5 (Version None)
Quarter: 2005Q1

REPORT INFORMATION
  Report Type: 
  Country: None (occurrence: None)
  Receive Date: 20050314
  Receipt Date: 20050228
  Transmission Date: 20050727
  Serious: Yes (Death)
  Sender: FDA-Public Use
  Company Number: JP-JNJFOC-20050201104

PATIENT
  Age: 77 Year
  Sex: Male

DRUGS (2)
  1. TAVANIC [Suspect]
     Indication: URINARY TRACT INFECTION
     Route: 049
     Dates: start: 20041222, end: 20041223
  2. ACETYLCYSTEINE [Concomitant]

REACTIONS (5)
  - DYSPNOEA [None]
  - HYPERHIDROSIS [None]
  - MALIGNANT NEOPLASM PROGRESSION [None]
  - METASTASES TO CENTRAL NERVOUS SYSTEM [None]
  - SHOCK [None]
